FAERS Safety Report 8444178-1 (Version None)
Quarter: 2012Q2

REPORT INFORMATION
  Report Type: 
  Country: None (occurrence: None)
  Receive Date: 20120618
  Receipt Date: 20120608
  Transmission Date: 20120825
  Serious: Yes (Other)
  Sender: FDA-Public Use
  Company Number: US-BAYER-2012-057322

PATIENT
  Sex: Female

DRUGS (1)
  1. BEYAZ [Suspect]
     Dosage: UNK
     Route: 048

REACTIONS (4)
  - FATIGUE [None]
  - SPEECH DISORDER [None]
  - ASTHENIA [None]
  - HYPOAESTHESIA [None]
